FAERS Safety Report 14134500 (Version 1)
Quarter: 2017Q4

REPORT INFORMATION
  Report Type: Spontaneous
  Country: US (occurrence: US)
  Receive Date: 20171027
  Receipt Date: 20171027
  Transmission Date: 20180321
  Serious: No
  Sender: FDA-Public Use
  Company Number: US-009507513-1710USA003902

PATIENT
  Sex: Female
  Weight: 43.08 kg

DRUGS (1)
  1. NEXPLANON [Suspect]
     Active Substance: ETONOGESTREL
     Indication: CONTRACEPTION
     Dosage: 1 LEFT ARM-IMPLANT, EVERY 3 YEARS
     Route: 059
     Dates: start: 20161220, end: 20171003

REACTIONS (8)
  - Paraesthesia [Unknown]
  - Menorrhagia [Not Recovered/Not Resolved]
  - Pain [Not Recovered/Not Resolved]
  - Abdominal pain [Unknown]
  - Menstruation irregular [Unknown]
  - Amenorrhoea [Recovered/Resolved]
  - Hypoaesthesia [Not Recovered/Not Resolved]
  - Cardiovascular disorder [Unknown]
